FAERS Safety Report 16620831 (Version 1)
Quarter: 2019Q3

REPORT INFORMATION
  Report Type: Spontaneous
  Country: US (occurrence: US)
  Receive Date: 20190723
  Receipt Date: 20190723
  Transmission Date: 20191004
  Serious: No
  Sender: FDA-Public Use
  Company Number: US-IGSA-SR10008173

PATIENT
  Age: 54 Year
  Sex: Female
  Weight: 68 kg

DRUGS (11)
  1. GAMUNEX-C [Suspect]
     Active Substance: HUMAN IMMUNOGLOBULIN G
     Indication: CHRONIC INFLAMMATORY DEMYELINATING POLYRADICULONEUROPATHY
     Dosage: 60 G, Q.M.T.
     Route: 042
     Dates: start: 20190322, end: 20190322
  2. GAMUNEX-C [Suspect]
     Active Substance: HUMAN IMMUNOGLOBULIN G
     Dosage: 5 G, Q.M.T.
     Route: 042
     Dates: start: 20190322, end: 20190322
  3. GAMUNEX-C [Suspect]
     Active Substance: HUMAN IMMUNOGLOBULIN G
     Dosage: 3 G, Q.M.T.
     Route: 042
     Dates: start: 20190322, end: 20190322
  4. PROGESTERONE. [Concomitant]
     Active Substance: PROGESTERONE
     Indication: HORMONE REPLACEMENT THERAPY
     Dosage: 100 MG, UNK
     Route: 048
  5. DULOXETINE. [Concomitant]
     Active Substance: DULOXETINE
     Dosage: 30 MG, UNK
     Route: 048
  6. SOLU-MEDROL [Concomitant]
     Active Substance: METHYLPREDNISOLONE SODIUM SUCCINATE
     Indication: CUTANEOUS LUPUS ERYTHEMATOSUS
     Dosage: 1 G, UNK
     Route: 042
     Dates: start: 20190322
  7. SYNTHROID [Concomitant]
     Active Substance: LEVOTHYROXINE SODIUM
     Indication: HYPOTHYROIDISM
     Dosage: 125 ?G, UNK
     Route: 048
  8. GABAPENTIN. [Concomitant]
     Active Substance: GABAPENTIN
     Dosage: 300 MG, UNK
     Route: 048
  9. ESTAZOLAM. [Concomitant]
     Active Substance: ESTAZOLAM
     Dosage: 2 MG, UNK
     Route: 048
  10. MINIVELLE [Concomitant]
     Active Substance: ESTRADIOL
     Indication: HORMONE REPLACEMENT THERAPY
     Dosage: 0.04 MG, UNK
  11. DICLOFENAC [Concomitant]
     Active Substance: DICLOFENAC
     Dosage: UNK
     Route: 048

REACTIONS (2)
  - Contusion [Not Recovered/Not Resolved]
  - Swelling [Not Recovered/Not Resolved]

NARRATIVE: CASE EVENT DATE: 20190402
